FAERS Safety Report 7319646-6 (Version None)
Quarter: 2011Q1

REPORT INFORMATION
  Report Type: 
  Country: None (occurrence: None)
  Receive Date: 20110228
  Receipt Date: 20100629
  Transmission Date: 20110831
  Serious: No
  Sender: FDA-Public Use
  Company Number: A0867653A

PATIENT
  Sex: Female

DRUGS (9)
  1. TOPAMAX [Concomitant]
  2. ALBUTEROL [Concomitant]
  3. LAMICTAL [Suspect]
     Dosage: 100MG TWICE PER DAY
     Route: 048
     Dates: start: 20060101
  4. ABILIFY [Concomitant]
  5. FLUTICASONE NASAL SPRAY [Concomitant]
  6. SINGULAIR [Concomitant]
  7. ADVAIR DISKUS 100/50 [Concomitant]
  8. LORATADINE [Concomitant]
  9. CLINDAMYCIN [Concomitant]

REACTIONS (3)
  - FATIGUE [None]
  - BLOOD CREATINE PHOSPHOKINASE INCREASED [None]
  - MUSCLE SPASMS [None]
